FAERS Safety Report 11865825 (Version 3)
Quarter: 2016Q1

REPORT INFORMATION
  Report Type: Report from Study
  Country: GB (occurrence: GB)
  Receive Date: 20151223
  Receipt Date: 20160229
  Transmission Date: 20160526
  Serious: Yes (Hospitalization, Other)
  Sender: FDA-Public Use
  Company Number: GB-GILEAD-2015-0188892

PATIENT
  Age: 77 Year
  Sex: Male
  Weight: 109.3 kg

DRUGS (21)
  1. IDELALISIB [Suspect]
     Active Substance: IDELALISIB
     Indication: CHRONIC LYMPHOCYTIC LEUKAEMIA
     Dosage: 150 MG PER PROTOCOL
     Route: 048
     Dates: start: 20151030, end: 20151214
  2. CHLORPHENIRAMINE                   /00072501/ [Concomitant]
     Active Substance: CHLORPHENIRAMINE
     Dosage: UNK
     Dates: start: 20151030
  3. HYDROCORTISONE. [Concomitant]
     Active Substance: HYDROCORTISONE
     Dosage: UNK
     Dates: start: 20151030
  4. SIMVASTATIN. [Concomitant]
     Active Substance: SIMVASTATIN
  5. CHLORAMBUCIL [Suspect]
     Active Substance: CHLORAMBUCIL
     Indication: CHRONIC LYMPHOCYTIC LEUKAEMIA
     Dosage: 22 MG, UNK
     Route: 048
     Dates: start: 20151030
  6. ACICLOVIR [Concomitant]
     Active Substance: ACYCLOVIR
     Dosage: UNK
     Dates: start: 20151030
  7. ASPIRIN                            /00002701/ [Concomitant]
     Active Substance: ASPIRIN
  8. OFATUMUMAB [Suspect]
     Active Substance: OFATUMUMAB
     Indication: CHRONIC LYMPHOCYTIC LEUKAEMIA
     Dosage: 1000 MG, CYCLICAL
     Route: 042
     Dates: start: 20151030
  9. ALLOPURINOL. [Concomitant]
     Active Substance: ALLOPURINOL
     Dosage: UNK
  10. COTRIMOXAZOLE [Concomitant]
     Active Substance: SULFAMETHOXAZOLE\TRIMETHOPRIM
     Dosage: UNK
     Dates: start: 20151030, end: 20151124
  11. PRIVIGEN [Concomitant]
     Active Substance: HUMAN IMMUNOGLOBULIN G
     Dosage: UNK
     Dates: start: 20150630
  12. ATENOLOL. [Concomitant]
     Active Substance: ATENOLOL
  13. METOCLOPRAMIDE. [Concomitant]
     Active Substance: METOCLOPRAMIDE
     Dosage: UNK
     Dates: start: 20151030
  14. NICORANDIL [Concomitant]
     Active Substance: NICORANDIL
     Indication: ANGINA PECTORIS
  15. ONDANSETRON [Concomitant]
     Active Substance: ONDANSETRON
     Dosage: UNK
     Dates: start: 20151030
  16. G-CSF [Concomitant]
     Active Substance: GRANULOCYTE COLONY-STIMULATING FACTOR NOS
  17. NTG [Concomitant]
     Active Substance: NITROGLYCERIN
     Indication: ANGINA PECTORIS
  18. PARACETAMOL [Concomitant]
     Active Substance: ACETAMINOPHEN
     Dosage: UNK
     Dates: start: 20151030
  19. AMLODIPINE [Concomitant]
     Active Substance: AMLODIPINE BESYLATE
  20. RAMIPRIL. [Concomitant]
     Active Substance: RAMIPRIL
     Indication: HYPERTENSION
  21. INSULIN [Concomitant]
     Active Substance: INSULIN NOS
     Indication: DIABETES MELLITUS

REACTIONS (1)
  - Small intestinal obstruction [Recovered/Resolved]

NARRATIVE: CASE EVENT DATE: 20151211
